FAERS Safety Report 4414950-3 (Version None)
Quarter: 2004Q3

REPORT INFORMATION
  Report Type: 
  Country: None (occurrence: None)
  Receive Date: 20040804
  Receipt Date: 20040723
  Transmission Date: 20050211
  Serious: Yes (Hospitalization)
  Sender: FDA-Public Use
  Company Number: US-BRISTOL-MYERS SQUIBB COMPANY-12651287

PATIENT
  Sex: Female

DRUGS (1)
  1. ABILIFY [Suspect]
     Indication: DELUSION
     Dosage: INITIATED AT 5 MG/DAY ENDED AT 10 MG/DAY.
     Route: 048

REACTIONS (1)
  - HYPOTHERMIA [None]
